FAERS Safety Report 8895809 (Version 2)
Quarter: 2012Q4

REPORT INFORMATION
  Report Type: Report from Study
  Country: JP (occurrence: JP)
  Receive Date: 20121108
  Receipt Date: 20121205
  Transmission Date: 20130627
  Serious: Yes (Other)
  Sender: FDA-Public Use
  Company Number: JP-JNJFOC-20121101765

PATIENT
  Age: 66 Year
  Sex: Female
  Weight: 61 kg

DRUGS (18)
  1. SIMPONI [Suspect]
     Indication: RHEUMATOID ARTHRITIS
     Route: 058
     Dates: start: 20120406
  2. SIMPONI [Suspect]
     Indication: RHEUMATOID ARTHRITIS
     Route: 058
     Dates: start: 20120502
  3. SIMPONI [Suspect]
     Indication: RHEUMATOID ARTHRITIS
     Route: 058
     Dates: start: 20120530
  4. SIMPONI [Suspect]
     Indication: RHEUMATOID ARTHRITIS
     Route: 058
     Dates: start: 20120627
  5. SIMPONI [Suspect]
     Indication: RHEUMATOID ARTHRITIS
     Route: 058
     Dates: start: 20120203
  6. SIMPONI [Suspect]
     Indication: RHEUMATOID ARTHRITIS
     Route: 058
     Dates: start: 20120302
  7. RHEUMATREX [Suspect]
     Indication: RHEUMATOID ARTHRITIS
     Route: 048
  8. MIZORIBINE [Concomitant]
     Indication: RHEUMATOID ARTHRITIS
  9. PREDNISOLONE [Concomitant]
     Indication: RHEUMATOID ARTHRITIS
     Dates: start: 20120821
  10. PREDNISOLONE [Concomitant]
     Indication: RHEUMATOID ARTHRITIS
     Dates: start: 20120810, end: 20120821
  11. PREDNISOLONE [Concomitant]
     Indication: RHEUMATOID ARTHRITIS
     Dates: end: 20120710
  12. PREDNISOLONE [Concomitant]
     Indication: RHEUMATOID ARTHRITIS
     Dates: start: 20120711, end: 20120809
  13. FAMOTIDINE [Concomitant]
     Indication: GASTRIC ULCER
     Route: 048
  14. FOLIAMIN [Concomitant]
     Indication: PROPHYLAXIS
  15. EVISTA [Concomitant]
     Indication: OSTEOPOROSIS
     Route: 048
  16. MYSLEE [Concomitant]
     Indication: INSOMNIA
     Route: 048
  17. NORPACE [Concomitant]
     Route: 048
  18. DICLOFENAC SODIUM [Concomitant]
     Route: 061

REACTIONS (1)
  - Ventricular arrhythmia [Recovering/Resolving]
